FAERS Safety Report 10140626 (Version 8)
Quarter: 2025Q4

REPORT INFORMATION
  Report Type: Spontaneous
  Country: US (occurrence: US)
  Receive Date: 20140429
  Receipt Date: 20251007
  Transmission Date: 20260118
  Serious: Yes (Hospitalization, Other)
  Sender: BAYER HEALTHCARE PHARMACEUTICALS INC.
  Company Number: US-BAYER-2014-060973

PATIENT
  Age: 30 Year
  Sex: Female
  Weight: 77.09 kg

DRUGS (1)
  1. MIRENA [Suspect]
     Active Substance: LEVONORGESTREL
     Indication: Contraception
     Dosage: 20?G/DAY
     Route: 015
     Dates: start: 20101118, end: 20120308

REACTIONS (10)
  - Device dislocation [None]
  - Fallopian tube perforation [None]
  - Internal haemorrhage [None]
  - Ectopic pregnancy with contraceptive device [Recovered/Resolved]
  - Drug ineffective [None]
  - Injury [None]
  - Pain [None]
  - Depression [None]
  - Device dislocation [None]
  - Sepsis [None]

NARRATIVE: CASE EVENT DATE: 20120301
